FAERS Safety Report 9120432 (Version 1)
Quarter: 2013Q1

REPORT INFORMATION
  Report Type: Spontaneous
  Country: IT (occurrence: IT)
  Receive Date: 20130226
  Receipt Date: 20130226
  Transmission Date: 20140127
  Serious: Yes (Other)
  Sender: FDA-Public Use
  Company Number: PHHY2013IT017991

PATIENT
  Age: 69 Year
  Sex: Female

DRUGS (6)
  1. CITALOPRAM [Suspect]
     Indication: DRUG ADMINISTRATION ERROR
     Dosage: 600 MG, TOTAL
     Route: 048
     Dates: start: 20120814, end: 20120814
  2. LANSOX [Concomitant]
  3. ZYLORIC [Concomitant]
  4. MOVICOL [Concomitant]
  5. EXOCIN [Concomitant]
  6. MUSCORIL [Concomitant]

REACTIONS (3)
  - Musculoskeletal stiffness [Recovered/Resolved]
  - Nausea [Recovered/Resolved]
  - Somnolence [Recovered/Resolved]
